FAERS Safety Report 23158719 (Version 2)
Quarter: 2023Q4

REPORT INFORMATION
  Report Type: Report from Study
  Country: CN (occurrence: CN)
  Receive Date: 20231108
  Receipt Date: 20231110
  Transmission Date: 20240110
  Serious: Yes (Life-Threatening)
  Sender: FDA-Public Use
  Company Number: CN-91310115MA1K3JP04B-2023JYP000069

PATIENT

DRUGS (5)
  1. TORIPALIMAB [Suspect]
     Active Substance: TORIPALIMAB
     Indication: Squamous cell carcinoma of the tongue
     Dosage: 240 MG, Q3W
     Route: 041
     Dates: start: 20230713, end: 20230913
  2. INVESTIGATIONAL PRODUCT [Suspect]
     Active Substance: INVESTIGATIONAL PRODUCT
     Indication: Squamous cell carcinoma of the tongue
     Dosage: 1.1 MG, QD
     Route: 048
     Dates: start: 20230713, end: 20230908
  3. INVESTIGATIONAL PRODUCT [Suspect]
     Active Substance: INVESTIGATIONAL PRODUCT
     Dosage: 1.1 MG, QD
     Route: 048
     Dates: start: 20230910, end: 20230912
  4. INVESTIGATIONAL PRODUCT [Suspect]
     Active Substance: INVESTIGATIONAL PRODUCT
     Dosage: 1.1 MG, QD
     Route: 048
     Dates: start: 20230913, end: 20230919
  5. INVESTIGATIONAL PRODUCT [Suspect]
     Active Substance: INVESTIGATIONAL PRODUCT
     Dosage: 1.1 MG, QD
     Route: 048
     Dates: start: 20230922, end: 20230922

REACTIONS (1)
  - Platelet count decreased [Recovered/Resolved]

NARRATIVE: CASE EVENT DATE: 20231003
